FAERS Safety Report 15254090 (Version 1)
Quarter: 2018Q4

REPORT INFORMATION
  Report Type: Spontaneous
  Country: US (occurrence: US)
  Receive Date: 20180808
  Receipt Date: 20180808
  Transmission Date: 20190204
  Serious: No
  Sender: FDA-Public Use
  Company Number: US-RICON PHARMA, LLC-RIC201805-000512

PATIENT
  Sex: Female

DRUGS (1)
  1. QUININE SULFATE USP [Suspect]
     Active Substance: QUININE SULFATE

REACTIONS (1)
  - Product administration error [Unknown]
